FAERS Safety Report 16838409 (Version 2)
Quarter: 2019Q4

REPORT INFORMATION
  Report Type: Spontaneous
  Country: ZA (occurrence: ZA)
  Receive Date: 20190923
  Receipt Date: 20191014
  Transmission Date: 20200122
  Serious: Yes (Other)
  Sender: FDA-Public Use
  Company Number: ZA-NOVOPROD-684624

PATIENT
  Age: 8 Year
  Sex: Male
  Weight: 22 kg

DRUGS (2)
  1. NORDITROPIN [Suspect]
     Active Substance: SOMATROPIN
     Indication: GROWTH HORMONE DEFICIENCY
     Dosage: 4 CLICKS AT NIGHT,SINGLE [21-27MCG/KG/D]
     Route: 058
     Dates: start: 201904
  2. LEVOTHYROXINE. [Concomitant]
     Active Substance: LEVOTHYROXINE
     Indication: THYROID STIMULATING HORMONE DEFICIENCY
     Dosage: 50MCG MON-FRI AND 25 MCG SAT/SUN
     Route: 065

REACTIONS (1)
  - Medulloblastoma recurrent [Recovered/Resolved]

NARRATIVE: CASE EVENT DATE: 20190709
